FAERS Safety Report 8145829 (Version 6)
Quarter: 2012Q4

REPORT INFORMATION
  Report Type: 
  Country: JP (occurrence: JP)
  Receive Date: 20110921
  Receipt Date: 20121105
  Transmission Date: 20130627
  Serious: Yes (Life-Threatening, Hospitalization, Disabling, Other)
  Sender: FDA-Public Use
  Company Number: JP-SANOFI-AVENTIS-2011SA060345

PATIENT
  Age: 66 Year
  Sex: Male
  Weight: 71.4 kg

DRUGS (13)
  1. TAXOTERE [Suspect]
     Indication: PROSTATE CANCER
     Dosage: Daily dose :40mg x 1time ; Frequency : 2 times/( )days, (4)weeks
     Route: 041
     Dates: start: 20110119, end: 201102
  2. TAXOTERE [Suspect]
     Indication: PROSTATE CANCER
     Dosage: Daily dose :40mg x 1time ; Frequency : 2 times/( )days, (4)weeks
     Route: 041
     Dates: start: 201104, end: 20110721
  3. DEXAMETHASONE [Concomitant]
     Indication: PROSTATE CANCER
  4. ALL OTHER THERAPEUTIC PRODUCTS [Concomitant]
     Dates: start: 20030818, end: 20110627
  5. CASODEX [Concomitant]
     Dates: start: 20030818, end: 201104
  6. ETHINYLESTRADIOL [Concomitant]
     Dates: start: 200812, end: 201012
  7. DEXAMETHASONE [Concomitant]
     Dates: start: 200812
  8. ESTRAMUSTINE [Concomitant]
     Dosage: Administration only for 6 days every course only from Jan 2011 to Feb 2011
     Dates: start: 201101, end: 201102
  9. ZOMETA [Concomitant]
     Dosage: only twice from Jan 2011 to Feb 2011
     Route: 042
     Dates: start: 201101, end: 201102
  10. ALL OTHER THERAPEUTIC PRODUCTS [Concomitant]
     Indication: PROSTATE CANCER
     Dosage: 3.3 mg x 2 x 1 times: 2 times/ days, 4 weeks
     Dates: start: 20110120, end: 201102
  11. ALL OTHER THERAPEUTIC PRODUCTS [Concomitant]
     Indication: PROSTATE CANCER
     Dosage: 3.3 mg x 2 x 1 times: 2 times/ days, 4 weeks
     Dates: start: 201104, end: 20110721
  12. SEROTONE [Concomitant]
     Dosage: 10 mg x 1 times: 2 times/day, 4 weeks
     Dates: start: 20110120, end: 201102
  13. SEROTONE [Concomitant]
     Dosage: 10 mg x 1 times: 2 times/day, 4 weeks
     Dates: start: 201104, end: 20110721

REACTIONS (9)
  - Blindness unilateral [Recovered/Resolved with Sequelae]
  - Optic ischaemic neuropathy [Recovered/Resolved with Sequelae]
  - Blindness [Recovered/Resolved with Sequelae]
  - Optic neuritis [Recovered/Resolved with Sequelae]
  - Visual field defect [Not Recovered/Not Resolved]
  - Visual acuity reduced [Unknown]
  - Pneumonia pneumococcal [Recovered/Resolved]
  - Septic shock [Recovered/Resolved]
  - Visual acuity reduced [Unknown]
